FAERS Safety Report 8901277 (Version 1)
Quarter: 2012Q4

REPORT INFORMATION
  Report Type: 
  Country: US (occurrence: US)
  Receive Date: 20121109
  Receipt Date: 20121109
  Transmission Date: 20130627
  Serious: No
  Sender: FDA-Public Use
  Company Number: US-PFIZER INC-2012278007

PATIENT
  Sex: Male
  Weight: 71.66 kg

DRUGS (1)
  1. VFEND [Suspect]
     Indication: MENINGITIS
     Dosage: UNK, 2x/day
     Dates: start: 201210

REACTIONS (2)
  - Fluid retention [Unknown]
  - Weight decreased [Unknown]
